FAERS Safety Report 12482245 (Version 2)
Quarter: 2017Q4

REPORT INFORMATION
  Report Type: Report from Study
  Country: US (occurrence: US)
  Receive Date: 20160620
  Receipt Date: 20171025
  Transmission Date: 20180320
  Serious: Yes (Other)
  Sender: FDA-Public Use
  Company Number: PHEH2016US014857

PATIENT
  Sex: Female

DRUGS (2)
  1. COSENTYX [Suspect]
     Active Substance: SECUKINUMAB
     Indication: PUSTULAR PSORIASIS
  2. COSENTYX [Suspect]
     Active Substance: SECUKINUMAB
     Indication: PSORIASIS
     Dosage: 150 MG, UNK
     Route: 058

REACTIONS (7)
  - Alopecia [Unknown]
  - Pain [Unknown]
  - Renal impairment [Unknown]
  - Onychomadesis [Unknown]
  - Hepatic function abnormal [Unknown]
  - Skin exfoliation [Unknown]
  - Psoriasis [Unknown]
